FAERS Safety Report 5811118-0 (Version None)
Quarter: 2008Q3

REPORT INFORMATION
  Report Type: 
  Country: None (occurrence: None)
  Receive Date: 20080716
  Receipt Date: 20080703
  Transmission Date: 20090109
  Serious: Yes (Other)
  Sender: FDA-Public Use
  Company Number: PHHY2008IT13259

PATIENT
  Sex: Female

DRUGS (2)
  1. TOLEP [Suspect]
     Indication: EPILEPSY
  2. TOLEP [Suspect]
     Indication: CONVULSION

REACTIONS (2)
  - AGGRESSION [None]
  - INJURY [None]
